FAERS Safety Report 25283095 (Version 1)
Quarter: 2025Q2

REPORT INFORMATION
  Report Type: Spontaneous
  Country: US (occurrence: US)
  Receive Date: 20250508
  Receipt Date: 20250508
  Transmission Date: 20250716
  Serious: Yes (Other)
  Sender: SUNOVION
  Company Number: US-SUMITOMO PHARMA SWITZERLAND GMBH-2025SPA005318

PATIENT

DRUGS (8)
  1. GEMTESA [Suspect]
     Active Substance: VIBEGRON
     Indication: Hypertonic bladder
     Route: 048
     Dates: start: 2024
  2. Casinema [Concomitant]
     Indication: Supplementation therapy
     Route: 065
  3. FISH OIL [Concomitant]
     Active Substance: FISH OIL
     Indication: Supplementation therapy
     Route: 065
  4. VITAMIN D [Concomitant]
     Active Substance: VITAMIN D NOS
     Indication: Supplementation therapy
     Route: 065
  5. ZYRTEC [Concomitant]
     Active Substance: CETIRIZINE HYDROCHLORIDE
     Indication: Hypersensitivity
     Route: 065
  6. MAGNESIUM [Concomitant]
     Active Substance: MAGNESIUM
     Indication: Supplementation therapy
     Route: 065
  7. DIAZEPAM [Concomitant]
     Active Substance: DIAZEPAM
     Indication: Anxiety
     Route: 065
  8. Ruedi xylo [Concomitant]
     Indication: Cataract
     Route: 047

REACTIONS (6)
  - Diarrhoea haemorrhagic [Unknown]
  - Cataract operation [Unknown]
  - Catheter placement [Unknown]
  - Faeces discoloured [Unknown]
  - Chromaturia [Unknown]
  - Constipation [Unknown]

NARRATIVE: CASE EVENT DATE: 20240101
